FAERS Safety Report 9734389 (Version 2)
Quarter: 2013Q4

REPORT INFORMATION
  Report Type: Report from Study
  Country: GB (occurrence: GB)
  Receive Date: 20131206
  Receipt Date: 20131212
  Transmission Date: 20140711
  Serious: Yes (Hospitalization)
  Sender: FDA-Public Use
  Company Number: GB-BIOGENIDEC-2013BI116294

PATIENT
  Age: 41 Year
  Sex: Female

DRUGS (5)
  1. TYSABRI [Suspect]
     Indication: PRODUCT USED FOR UNKNOWN INDICATION
     Route: 042
     Dates: start: 20100712
  2. FLUOXETINE [Concomitant]
     Indication: DEPRESSED MOOD
     Route: 048
     Dates: start: 20090106
  3. POTASSIUM CITRATE [Concomitant]
     Indication: URINARY TRACT DISORDER
     Route: 048
     Dates: start: 20130101
  4. GABAPENTIN [Concomitant]
     Indication: PAIN
     Route: 048
     Dates: start: 20070101
  5. OMEPRAZOLE [Concomitant]
     Indication: GASTROOESOPHAGEAL REFLUX DISEASE
     Route: 048
     Dates: start: 20130101

REACTIONS (3)
  - Fall [Recovered/Resolved with Sequelae]
  - Head injury [Recovered/Resolved with Sequelae]
  - Respiratory depression [Recovered/Resolved]
